FAERS Safety Report 6576943-X (Version None)
Quarter: 2010Q1

REPORT INFORMATION
  Report Type: 
  Country: None (occurrence: None)
  Receive Date: 20100210
  Receipt Date: 20100201
  Transmission Date: 20100710
  Serious: Yes (Death, Life-Threatening, Hospitalization)
  Sender: FDA-Public Use
  Company Number: BE-AMGEN-US391018

PATIENT
  Age: 84 Year
  Sex: Male
  Weight: 61 kg

DRUGS (2)
  1. ENBREL [Suspect]
     Indication: RHEUMATOID ARTHRITIS
     Route: 058
     Dates: start: 20051001, end: 20091201
  2. MEDROL [Concomitant]
     Indication: RHEUMATOID ARTHRITIS
     Route: 048
     Dates: start: 20030101, end: 20100118

REACTIONS (5)
  - ENDOCARDITIS [None]
  - MITRAL VALVE DISEASE [None]
  - SALMONELLA SEPSIS [None]
  - SHOCK [None]
  - STREPTOCOCCAL SEPSIS [None]
